FAERS Safety Report 5645710-3 (Version None)
Quarter: 2008Q1

REPORT INFORMATION
  Report Type: 
  Country: None (occurrence: None)
  Receive Date: 20080229
  Receipt Date: 20080227
  Transmission Date: 20080703
  Serious: Yes (Hospitalization)
  Sender: FDA-Public Use
  Company Number: DE-BOEHRINGER INGELHEIM GMBH, GERMANY-2001-DE-11081

PATIENT
  Sex: Male

DRUGS (2)
  1. VIRAMUNE [Suspect]
     Indication: ACQUIRED IMMUNODEFICIENCY SYNDROME
     Dosage: 400 MG/D ADM TO MOTHER
     Route: 064
     Dates: start: 20001110, end: 20010409
  2. COMBIVIR [Concomitant]
     Indication: ACQUIRED IMMUNODEFICIENCY SYNDROME
     Dosage: 900 MG/D PO ADM TO MOTHER
     Route: 064
     Dates: start: 20001110, end: 20010409

REACTIONS (4)
  - FOETAL GROWTH RETARDATION [None]
  - HYPONATRAEMIA [None]
  - HYPOSPADIAS [None]
  - RESPIRATORY DEPRESSION [None]
